FAERS Safety Report 5186322-8 (Version None)
Quarter: 2006Q4

REPORT INFORMATION
  Report Type: 
  Country: None (occurrence: None)
  Receive Date: 20061220
  Receipt Date: 20060201
  Transmission Date: 20070319
  Serious: Yes (Other)
  Sender: FDA-Public Use
  Company Number: GB-ELI_LILLY_AND_COMPANY-GB200602000323

PATIENT
  Age: 54 Year
  Sex: Male

DRUGS (8)
  1. HUMALOG [Suspect]
     Dosage: 10 U, EACH MORNING
  2. HUMALOG [Suspect]
     Dosage: 8 U, OTHER
  3. HUMALOG [Suspect]
     Dosage: 12 U, EACH EVENING
  4. LANTUS [Concomitant]
     Indication: DIABETES MELLITUS
     Dosage: 22 UNK, UNK
     Dates: start: 20020101
  5. ASPIRIN [Concomitant]
     Indication: CARDIOVASCULAR EVENT PROPHYLAXIS
     Dosage: 75 MG, DAILY (1/D)
  6. SIMVASTATIN [Concomitant]
     Indication: BLOOD CHOLESTEROL
     Dosage: 20 MG, DAILY (1/D)
  7. HUMALOG [Suspect]
     Indication: DIABETES MELLITUS
     Dosage: 15 U, UNK
     Dates: start: 20051101
  8. INSULIN DETEMIR [Concomitant]
     Indication: DIABETES MELLITUS
     Dosage: 26 U, UNK
     Dates: start: 20050601

REACTIONS (4)
  - BLOOD GLUCOSE DECREASED [None]
  - BLOOD GLUCOSE INCREASED [None]
  - CONVULSION [None]
  - PHARMACEUTICAL PRODUCT COMPLAINT [None]
